FAERS Safety Report 6253278-6 (Version None)
Quarter: 2009Q3

REPORT INFORMATION
  Report Type: 
  Country: None (occurrence: None)
  Receive Date: 20090701
  Receipt Date: 20090626
  Transmission Date: 20100115
  Serious: Yes (Life-Threatening, Hospitalization, Disabling, Other)
  Sender: FDA-Public Use
  Company Number: US-CELGENEUS-163-21880-08091409

PATIENT
  Sex: Male

DRUGS (3)
  1. REVLIMID [Suspect]
     Indication: B-CELL LYMPHOMA
     Route: 048
     Dates: end: 20080919
  2. LISINOPRIL [Concomitant]
     Indication: HYPERTENSION
     Route: 065
  3. ALLOPURINOL [Concomitant]
     Indication: GOUT
     Route: 065

REACTIONS (2)
  - ANAEMIA [None]
  - CEREBROVASCULAR ACCIDENT [None]
